FAERS Safety Report 22134354 (Version 1)
Quarter: 2023Q1

REPORT INFORMATION
  Report Type: Other
  Country: None (occurrence: PT)
  Receive Date: 20230324
  Receipt Date: 20230324
  Transmission Date: 20230418
  Serious: Yes (Other)
  Sender: FDA-Public Use
  Company Number: PT-Caplin Steriles Limited-2139488

PATIENT
  Age: 73 Year
  Sex: Male

DRUGS (1)
  1. TRANEXAMIC ACID [Suspect]
     Active Substance: TRANEXAMIC ACID
     Indication: Product used for unknown indication
     Route: 037

REACTIONS (6)
  - Medication error [Unknown]
  - Pain in extremity [Recovered/Resolved]
  - Haemodynamic instability [Recovered/Resolved]
  - Myoclonus [Recovered/Resolved]
  - Perineal pain [Recovered/Resolved]
  - Partial seizures [Recovered/Resolved]
